FAERS Safety Report 11639715 (Version 2)
Quarter: 2015Q4

REPORT INFORMATION
  Report Type: Spontaneous
  Country: GB (occurrence: GB)
  Receive Date: 20151019
  Receipt Date: 20151116
  Transmission Date: 20160304
  Serious: Yes (Other)
  Sender: FDA-Public Use
  Company Number: GB-FRESENIUS KABI-FK201504943

PATIENT
  Age: 82 Year
  Sex: Male

DRUGS (5)
  1. SENNA [Concomitant]
     Active Substance: SENNA LEAF\SENNOSIDES\SENNOSIDES A AND B
  2. LEVOFLOXACIN (MANUFACTURER UNKNOWN) [Suspect]
     Active Substance: LEVOFLOXACIN
     Indication: URINARY TRACT INFECTION
     Route: 048
     Dates: end: 20150916
  3. LORATADINE. [Concomitant]
     Active Substance: LORATADINE
  4. TAMSULOSIN [Concomitant]
     Active Substance: TAMSULOSIN
  5. DOCUSATE [Concomitant]
     Active Substance: DOCUSATE

REACTIONS (4)
  - Liver function test abnormal [Recovering/Resolving]
  - Dysphagia [Recovering/Resolving]
  - Vomiting [Recovering/Resolving]
  - Dyspnoea [Recovering/Resolving]

NARRATIVE: CASE EVENT DATE: 20150916
